FAERS Safety Report 8826917 (Version 3)
Quarter: 2014Q3

REPORT INFORMATION
  Report Type: Spontaneous
  Country: AR (occurrence: AR)
  Receive Date: 20121008
  Receipt Date: 20140827
  Transmission Date: 20150326
  Serious: Yes (Hospitalization, Other)
  Sender: FDA-Public Use
  Company Number: AR-AMGEN-ARGSP2012062811

PATIENT
  Age: 61 Year
  Sex: Female

DRUGS (3)
  1. METHOTREXATE SODIUM. [Suspect]
     Active Substance: METHOTREXATE SODIUM
     Indication: PRODUCT USED FOR UNKNOWN INDICATION
     Dosage: 10 MG, WEEKLY
     Route: 065
     Dates: start: 2011
  2. ENBREL [Suspect]
     Active Substance: ETANERCEPT
     Indication: PSORIATIC ARTHROPATHY
     Dosage: 50 MG, 2X/WEEK
     Route: 058
     Dates: start: 20110404, end: 201406
  3. THYROXINE [Concomitant]
     Active Substance: LEVOTHYROXINE
     Dosage: UNK

REACTIONS (8)
  - Hallucination [Recovered/Resolved]
  - Inflammation [Not Recovered/Not Resolved]
  - Pneumonia [Recovered/Resolved]
  - Immunosuppression [Unknown]
  - White blood cell count decreased [Not Recovered/Not Resolved]
  - Liver disorder [Not Recovered/Not Resolved]
  - Osteoporosis [Not Recovered/Not Resolved]
  - Skin induration [Not Recovered/Not Resolved]

NARRATIVE: CASE EVENT DATE: 201109
